FAERS Safety Report 14281080 (Version 3)
Quarter: 2018Q2

REPORT INFORMATION
  Report Type: Spontaneous
  Country: BR (occurrence: BR)
  Receive Date: 20171213
  Receipt Date: 20180419
  Transmission Date: 20180711
  Serious: Yes (Other)
  Sender: FDA-Public Use
  Company Number: BR-ABBVIE-17P-020-2187836-00

PATIENT
  Sex: Female

DRUGS (8)
  1. DEPAKOTE [Suspect]
     Active Substance: DIVALPROEX SODIUM
     Indication: MUSCLE SPASMS
     Dosage: MORNING/ NIGHT
     Route: 048
  2. DEPAKOTE ER [Suspect]
     Active Substance: DIVALPROEX SODIUM
     Indication: MUSCLE SPASMS
     Dosage: MORNING/ NIGHT
     Route: 048
  3. DEPAKOTE [Suspect]
     Active Substance: DIVALPROEX SODIUM
     Indication: MUSCLE SPASMS
     Dosage: AT LUNCH
     Route: 048
  4. CLONAZEPAM. [Concomitant]
     Active Substance: CLONAZEPAM
     Indication: SPINOCEREBELLAR ATAXIA
     Route: 048
  5. LYRICA [Concomitant]
     Active Substance: PREGABALIN
     Indication: HEADACHE
     Dosage: AT NIGHT
     Route: 048
  6. AMITRIPTYLINE [Concomitant]
     Active Substance: AMITRIPTYLINE
     Indication: SLEEP DISORDER
  7. ENALAPRIL [Concomitant]
     Active Substance: ENALAPRIL
     Indication: HEART RATE ABNORMAL
     Dosage: MORNING
     Route: 048
  8. AMITRIPTYLINE [Concomitant]
     Active Substance: AMITRIPTYLINE
     Indication: DEPRESSION
     Dosage: AT NIGHT
     Route: 048

REACTIONS (8)
  - Product use in unapproved indication [Unknown]
  - Cholelithiasis [Unknown]
  - Glaucoma [Recovering/Resolving]
  - Drug ineffective for unapproved indication [Recovered/Resolved]
  - Diarrhoea [Unknown]
  - Hyperglycaemia [Recovered/Resolved]
  - Product quality issue [Unknown]
  - Medication residue present [Unknown]
